FAERS Safety Report 4313467-4 (Version None)
Quarter: 2004Q1

REPORT INFORMATION
  Report Type: 
  Country: None (occurrence: None)
  Receive Date: 20040308
  Receipt Date: 20031009
  Transmission Date: 20041129
  Serious: Yes (Disabling)
  Sender: FDA-Public Use
  Company Number: JP-ROCHE-348888

PATIENT
  Age: 58 Year
  Sex: Female
  Weight: 49 kg

DRUGS (4)
  1. XELODA [Suspect]
     Indication: BREAST CANCER
     Route: 048
     Dates: start: 20030925, end: 20031002
  2. CHINESE MEDICINE [Suspect]
     Dosage: DRUG TAKEN: SHIKARON
     Route: 065
  3. AREDIA [Concomitant]
     Indication: METASTASES TO BONE
     Route: 042
     Dates: start: 20021111
  4. DECADRON [Concomitant]
     Indication: PARALYSIS
     Dates: start: 20030911, end: 20031002

REACTIONS (6)
  - COMA [None]
  - CONVULSION [None]
  - DISEASE PROGRESSION [None]
  - HYPOKALAEMIA [None]
  - HYPONATRAEMIA [None]
  - PARALYSIS [None]
